FAERS Safety Report 4806434-5 (Version None)
Quarter: 2005Q4

REPORT INFORMATION
  Report Type: 
  Country: None (occurrence: None)
  Receive Date: 20051019
  Receipt Date: 20051005
  Transmission Date: 20060501
  Serious: Yes (Hospitalization)
  Sender: FDA-Public Use
  Company Number: 2005BI018690

PATIENT
  Age: 59 Year
  Sex: Female
  Weight: 61.2356 kg

DRUGS (1)
  1. AVONEX LIQUID [Suspect]
     Indication: MULTIPLE SCLEROSIS
     Dosage: QW IM
     Route: 030
     Dates: start: 20030801

REACTIONS (5)
  - CEREBROVASCULAR ACCIDENT [None]
  - CHILLS [None]
  - DYSPNOEA [None]
  - FALL [None]
  - INCREASED TENDENCY TO BRUISE [None]
